FAERS Safety Report 9484226 (Version 1)
Quarter: 2013Q3

REPORT INFORMATION
  Report Type: Spontaneous
  Country: US (occurrence: US)
  Receive Date: 20130828
  Receipt Date: 20130828
  Transmission Date: 20140515
  Serious: Yes (Hospitalization)
  Sender: FDA-Public Use
  Company Number: US-AMGEN-KDL397713

PATIENT
  Age: 55 Year
  Sex: Female

DRUGS (3)
  1. ENBREL [Suspect]
     Indication: RHEUMATOID ARTHRITIS
     Dosage: UNK UNK, UNK
     Route: 065
  2. HYDROXYCHLOROQUINE [Concomitant]
     Dosage: 200 MG, BID
  3. METHOTREXATE [Concomitant]
     Dosage: 20 MG, QWK
     Route: 048

REACTIONS (8)
  - White blood cell disorder [Recovered/Resolved]
  - Haemoglobin abnormal [Recovered/Resolved]
  - Herpes oesophagitis [Recovered/Resolved]
  - Herpes dermatitis [Recovered/Resolved]
  - Oral candidiasis [Recovered/Resolved]
  - Oesophageal candidiasis [Recovered/Resolved]
  - Rheumatoid arthritis [Not Recovered/Not Resolved]
  - Gait disturbance [Not Recovered/Not Resolved]
